FAERS Safety Report 25581769 (Version 1)
Quarter: 2025Q3

REPORT INFORMATION
  Report Type: Spontaneous
  Country: EU (occurrence: EU)
  Receive Date: 20250719
  Receipt Date: 20250719
  Transmission Date: 20251020
  Serious: Yes (Hospitalization, Other)
  Sender: AUROBINDO
  Company Number: EU-AEMPS-1719396

PATIENT
  Age: 87 Year
  Sex: Male
  Weight: 63 kg

DRUGS (2)
  1. CLOPIDOGREL [Suspect]
     Active Substance: CLOPIDOGREL BISULFATE
     Indication: Prophylaxis
     Dosage: 225 MILLIGRAM, ONCE A DAY
     Route: 048
     Dates: start: 20250402, end: 20250407
  2. CLOPIDOGREL [Suspect]
     Active Substance: CLOPIDOGREL BISULFATE
     Route: 048
     Dates: start: 20250408, end: 20250413

REACTIONS (3)
  - Gastroduodenal haemorrhage [Recovered/Resolved]
  - Anaemia [Recovered/Resolved]
  - Increased dose administered [Recovered/Resolved]

NARRATIVE: CASE EVENT DATE: 20250402
